FAERS Safety Report 4712748-X (Version None)
Quarter: 2005Q3

REPORT INFORMATION
  Report Type: 
  Country: None (occurrence: None)
  Receive Date: 20050701
  Receipt Date: 20050329
  Transmission Date: 20060218
  Serious: Yes (Death)
  Sender: FDA-Public Use
  Company Number: 2005051561

PATIENT
  Age: 40 Year
  Sex: Male

DRUGS (4)
  1. ZOLOFT [Suspect]
     Indication: ANXIETY
     Route: 065
  2. ZOLOFT [Suspect]
     Indication: DEPRESSION
     Route: 065
  3. RISPERIDONE [Concomitant]
  4. OLANZAPINE [Concomitant]

REACTIONS (1)
  - COMPLETED SUICIDE [None]
